FAERS Safety Report 5332367-4 (Version None)
Quarter: 2007Q2

REPORT INFORMATION
  Report Type: 
  Country: None (occurrence: None)
  Receive Date: 20070523
  Receipt Date: 20070509
  Transmission Date: 20071010
  Serious: Yes (Other)
  Sender: FDA-Public Use
  Company Number: B0420093B

PATIENT
  Age: 27 Year
  Sex: Female
  Weight: 70.5 kg

DRUGS (5)
  1. VACCINE PLACEBO-AL(OH)3 [Suspect]
     Route: 030
     Dates: start: 20060314, end: 20060314
  2. LITHIUM CARBONATE [Suspect]
     Indication: MAJOR DEPRESSION
     Dosage: 750MG PER DAY
     Route: 048
     Dates: start: 20060201, end: 20060320
  3. REBOXETINE [Suspect]
     Indication: MAJOR DEPRESSION
     Dosage: 10MG PER DAY
     Route: 048
     Dates: start: 20060314
  4. ARIPIPRAZOLE [Suspect]
     Indication: MAJOR DEPRESSION
     Dosage: 15MG PER DAY
     Route: 048
     Dates: start: 20060320
  5. ZOPICLONE [Suspect]
     Indication: INSOMNIA
     Dosage: 7.5MG PER DAY
     Route: 048
     Dates: start: 20060320

REACTIONS (3)
  - NEUTROPENIA [None]
  - RASH PRURITIC [None]
  - THROMBOCYTHAEMIA [None]
